FAERS Safety Report 14941798 (Version 6)
Quarter: 2018Q2

REPORT INFORMATION
  Report Type: Spontaneous
  Country: CO (occurrence: CO)
  Receive Date: 20180527
  Receipt Date: 20180607
  Transmission Date: 20180711
  Serious: Yes (Other)
  Sender: FDA-Public Use
  Company Number: PHHY2018CO003032

PATIENT
  Age: 26 Year
  Sex: Male

DRUGS (5)
  1. IMMUNOGLOBULIN (IMMUNOGLOBULIN G HUMAN) [Suspect]
     Active Substance: HUMAN IMMUNOGLOBULIN G
     Indication: STILL^S DISEASE
     Dosage: 400 MG, QD
     Route: 042
  2. NAPROXEN. [Suspect]
     Active Substance: NAPROXEN
     Indication: STILL^S DISEASE
     Dosage: 250 MG, Q8H
     Route: 065
  3. METHOTREXATE. [Suspect]
     Active Substance: METHOTREXATE
     Indication: STILL^S DISEASE
     Dosage: 15 MG, QW
     Route: 065
  4. PREDNISOLONE. [Suspect]
     Active Substance: PREDNISOLONE
     Indication: STILL^S DISEASE
     Dosage: 30 MG, QD
     Route: 065
  5. TOCILIZUMAB. [Suspect]
     Active Substance: TOCILIZUMAB
     Indication: STILL^S DISEASE
     Dosage: 8 MG/KG, QMO
     Route: 065

REACTIONS (7)
  - Diabetes mellitus [Unknown]
  - Pyrexia [Unknown]
  - Osteoporosis [Unknown]
  - Drug ineffective [Unknown]
  - Osteonecrosis [Unknown]
  - Hypertension [Unknown]
  - Product use in unapproved indication [Unknown]
